FAERS Safety Report 7929877-X (Version None)
Quarter: 2011Q4

REPORT INFORMATION
  Report Type: 
  Country: None (occurrence: None)
  Receive Date: 20111121
  Receipt Date: 20111115
  Transmission Date: 20120403
  Serious: No
  Sender: FDA-Public Use
  Company Number: US-PFIZER INC-2011243772

PATIENT
  Sex: Male
  Weight: 90.703 kg

DRUGS (3)
  1. TESTOSTERONE [Suspect]
     Indication: BLOOD TESTOSTERONE DECREASED
     Dosage: UNK
     Route: 062
  2. VIAGRA [Suspect]
     Dosage: UNK
  3. MORNIFLUMATE [Concomitant]
     Indication: URINARY TRACT DISORDER
     Dosage: UNK

REACTIONS (1)
  - ERYTHEMA [None]
